FAERS Safety Report 8084113-1 (Version None)
Quarter: 2012Q1

REPORT INFORMATION
  Report Type: 
  Country: None (occurrence: None)
  Receive Date: 20120128
  Receipt Date: 20110204
  Transmission Date: 20120608
  Serious: No
  Sender: FDA-Public Use
  Company Number: US-ABBOTT-11P-163-0703546-00

PATIENT
  Sex: Male
  Weight: 95.34 kg

DRUGS (7)
  1. HUMIRA [Suspect]
     Indication: PSORIASIS
     Dosage: FOUR INJECTIONS ALREADY
     Route: 058
     Dates: start: 20101201
  2. UNKNOWN SLEEPING PILL [Concomitant]
     Indication: SLEEP DISORDER
  3. LIPITOR [Concomitant]
     Indication: BLOOD CHOLESTEROL INCREASED
  4. UNKNOWN BLOOD PRESSURE MEDICATION [Concomitant]
     Indication: HYPERTENSION
  5. PLAVIX [Concomitant]
     Indication: ANTICOAGULANT THERAPY
  6. ALPRAZOLAM [Concomitant]
     Indication: ANXIETY
  7. ASPIRIN [Concomitant]
     Indication: PRODUCT USED FOR UNKNOWN INDICATION

REACTIONS (3)
  - FEELING ABNORMAL [None]
  - ANXIETY [None]
  - RESTLESSNESS [None]
